FAERS Safety Report 16234654 (Version 1)
Quarter: 2020Q3

REPORT INFORMATION
  Report Type: Report from Study
  Country: FR (occurrence: FR)
  Receive Date: 20190424
  Receipt Date: 20190424
  Transmission Date: 20201105
  Serious: Yes (Other)
  Sender: FDA-Public Use
  Company Number: FR-ASTRAZENECA-2019SE58695

PATIENT
  Age: 888 Month
  Sex: Male

DRUGS (3)
  1. MEDI4736 [Suspect]
     Active Substance: DURVALUMAB
     Indication: HEPATOBILIARY CANCER
     Route: 042
     Dates: start: 20190307
  2. TREMELIMUMAB. [Suspect]
     Active Substance: TREMELIMUMAB
     Indication: HEPATOBILIARY CANCER
     Route: 042
     Dates: start: 20190307
  3. PACLITAXEL. [Suspect]
     Active Substance: PACLITAXEL
     Indication: HEPATOBILIARY CANCER
     Dosage: 135 MG/M2
     Route: 065
     Dates: start: 20190307

REACTIONS (1)
  - Anaphylactic reaction [Recovered/Resolved]

NARRATIVE: CASE EVENT DATE: 20190415
